FAERS Safety Report 4382229-4 (Version None)
Quarter: 2004Q2

REPORT INFORMATION
  Report Type: 
  Country: None (occurrence: None)
  Receive Date: 20040615
  Receipt Date: 20040602
  Transmission Date: 20050107
  Serious: Yes (Other)
  Sender: FDA-Public Use
  Company Number: CEL-2004-01190-ROC

PATIENT
  Age: 24 Year
  Sex: Female

DRUGS (3)
  1. METADATE CD CAPSULES 10 MG (METHYLPHENIDATE HYDROCHLORIDE) [Suspect]
     Dosage: 10 MG, TWICE DAILY, ROUTE PO
     Route: 048
     Dates: start: 20040517, end: 20040527
  2. DEPO-PROVERA [Concomitant]
  3. EFFEXOR [Concomitant]

REACTIONS (1)
  - SUICIDAL IDEATION [None]
